FAERS Safety Report 4615005-5 (Version None)
Quarter: 2005Q1

REPORT INFORMATION
  Report Type: 
  Country: None (occurrence: None)
  Receive Date: 20050322
  Receipt Date: 20050318
  Transmission Date: 20050727
  Serious: Yes (Death)
  Sender: FDA-Public Use
  Company Number: US-JNJFOC-20041205155

PATIENT
  Age: 67 Year
  Sex: Male
  Weight: 102.06 kg

DRUGS (1)
  1. LEVAQUIN [Suspect]
     Indication: SINUSITIS

REACTIONS (3)
  - CORONARY ARTERY ATHEROSCLEROSIS [None]
  - DEATH [None]
  - HYPERTENSION [None]
